FAERS Safety Report 24274990 (Version 1)
Quarter: 2024Q3

REPORT INFORMATION
  Report Type: Spontaneous
  Country: JP (occurrence: JP)
  Receive Date: 20240902
  Receipt Date: 20240902
  Transmission Date: 20241017
  Serious: Yes (Other)
  Sender: ORGANON
  Company Number: JP-ORGANON-O2408JPN002175

PATIENT
  Sex: Female

DRUGS (1)
  1. ALENDRONATE SODIUM [Suspect]
     Active Substance: ALENDRONATE SODIUM
     Indication: Osteoporosis
     Dosage: 35 MILLIGRAM
     Route: 048

REACTIONS (3)
  - Gastric haemorrhage [Recovering/Resolving]
  - Gastritis erosive [Recovering/Resolving]
  - Periodontal disease [Unknown]
